FAERS Safety Report 8608714 (Version 2)
Quarter: 2014Q1

REPORT INFORMATION
  Report Type: Spontaneous
  Country: US (occurrence: None)
  Receive Date: 20120323
  Receipt Date: 20130305
  Transmission Date: 20141002
  Serious: Yes (Other)
  Sender: FDA-Public Use
  Company Number: 163-21880-11114168

PATIENT
  Age: 70 Year
  Sex: Male

DRUGS (4)
  1. REVLIMID [Suspect]
     Indication: MYELODYSPLASTIC SYNDROME
     Dosage: 5 MG, 1 IN 1 D, PO
     Route: 048
     Dates: start: 20110613, end: 20111116
  2. PROCRIT [Concomitant]
  3. RITUXAN [Concomitant]
  4. IVIG (IMMUNOGLOBULIN) [Concomitant]

REACTIONS (3)
  - Red blood cell count decreased [None]
  - Myelodysplastic syndrome transformation [None]
  - White blood cell count decreased [None]
